FAERS Safety Report 6910188-6 (Version None)
Quarter: 2010Q3

REPORT INFORMATION
  Report Type: 
  Country: None (occurrence: None)
  Receive Date: 20100806
  Receipt Date: 20100729
  Transmission Date: 20110219
  Serious: Yes (Hospitalization)
  Sender: FDA-Public Use
  Company Number: AT-NOVOPROD-312305

PATIENT
  Age: 63 Year
  Sex: Male
  Weight: 118 kg

DRUGS (4)
  1. VICTOZA [Suspect]
     Indication: DIABETES MELLITUS
     Dosage: 1 DF ONCE PER DAY
     Route: 058
  2. RASILEZ                            /01763601/ [Concomitant]
     Indication: HYPERTENSION
     Dosage: 300 MG, QD
     Route: 048
  3. LISINOPRIL                         /00894002/ [Concomitant]
     Indication: HYPERTENSION
     Dosage: UNKNOWN DOSE
  4. LISINOPRIL                         /00894002/ [Concomitant]
     Dosage: 1-0-0
     Route: 048

REACTIONS (2)
  - BLOOD PRESSURE DECREASED [None]
  - VERTIGO [None]
